FAERS Safety Report 7320511-9 (Version None)
Quarter: 2011Q1

REPORT INFORMATION
  Report Type: 
  Country: None (occurrence: None)
  Receive Date: 20110228
  Receipt Date: 20110223
  Transmission Date: 20110831
  Serious: Yes (Other)
  Sender: FDA-Public Use
  Company Number: CH-BRISTOL-MYERS SQUIBB COMPANY-15571714

PATIENT
  Age: 32 Year
  Sex: Female

DRUGS (5)
  1. ZYPREXA [Suspect]
     Indication: SCHIZOPHRENIA
  2. STILNOX [Suspect]
     Indication: INSOMNIA
     Dates: start: 20080101
  3. TEMESTA [Suspect]
     Dates: end: 20100201
  4. ABILIFY [Suspect]
     Indication: SCHIZOPHRENIA
     Dates: start: 20080101, end: 20100101
  5. CIPRALEX [Suspect]
     Indication: SCHIZOPHRENIA
     Dates: start: 20080101

REACTIONS (3)
  - PREGNANCY [None]
  - CHORIOAMNIONITIS [None]
  - PREMATURE LABOUR [None]
